FAERS Safety Report 7286791-3 (Version None)
Quarter: 2011Q1

REPORT INFORMATION
  Report Type: 
  Country: None (occurrence: None)
  Receive Date: 20110210
  Receipt Date: 20110201
  Transmission Date: 20110831
  Serious: Yes (Hospitalization)
  Sender: FDA-Public Use
  Company Number: DE-GILEAD-2011-0035993

PATIENT
  Sex: Male

DRUGS (4)
  1. NEVIRAPINE [Concomitant]
     Indication: HIV INFECTION
  2. FLUVASTATIN [Concomitant]
  3. PANTOPRAZOLE [Concomitant]
  4. TRUVADA [Suspect]
     Indication: HIV INFECTION

REACTIONS (1)
  - BLOOD SODIUM DECREASED [None]
